FAERS Safety Report 9674890 (Version 3)
Quarter: 2014Q1

REPORT INFORMATION
  Report Type: Report from Study
  Country: CM (occurrence: CM)
  Receive Date: 20131107
  Receipt Date: 20140213
  Transmission Date: 20141002
  Serious: Yes (Death)
  Sender: FDA-Public Use
  Company Number: PHHY2012CM002327

PATIENT
  Sex: Female

DRUGS (3)
  1. GLIVEC [Suspect]
     Indication: CHRONIC MYELOID LEUKAEMIA
     Dosage: 800 MG, DAILY
     Route: 048
  2. GLIVEC [Suspect]
     Dosage: 800 MG, DAILY
     Route: 048
  3. GLIVEC [Suspect]
     Dosage: 600 MG, DAILY
     Route: 048

REACTIONS (5)
  - Death [Fatal]
  - Drug resistance [Unknown]
  - No therapeutic response [Unknown]
  - Maternal exposure during pregnancy [Unknown]
  - Normal newborn [Unknown]
